FAERS Safety Report 6225913-X (Version None)
Quarter: 2009Q2

REPORT INFORMATION
  Report Type: 
  Country: None (occurrence: None)
  Receive Date: 20090612
  Receipt Date: 20090505
  Transmission Date: 20091009
  Serious: No
  Sender: FDA-Public Use
  Company Number: US-ABBOTT-09P-163-0571535-00

PATIENT
  Sex: Male
  Weight: 98.064 kg

DRUGS (5)
  1. HUMIRA [Suspect]
     Indication: COLITIS ULCERATIVE
     Dates: start: 20090308, end: 20090308
  2. HUMIRA [Suspect]
     Dates: start: 20090322, end: 20090322
  3. HUMIRA [Suspect]
     Dates: start: 20090405, end: 20090405
  4. HUMIRA [Suspect]
     Dates: start: 20090421
  5. IORCET [Concomitant]
     Indication: DRUG USE FOR UNKNOWN INDICATION
     Dates: start: 20080101

REACTIONS (4)
  - DISORIENTATION [None]
  - DIZZINESS [None]
  - INCORRECT DOSE ADMINISTERED [None]
  - NAUSEA [None]
